FAERS Safety Report 9809506 (Version 3)
Quarter: 2015Q1

REPORT INFORMATION
  Report Type: Spontaneous
  Country: US (occurrence: US)
  Receive Date: 20140110
  Receipt Date: 20150302
  Transmission Date: 20150721
  Serious: Yes (Death, Other)
  Sender: FDA-Public Use
  Company Number: US-SANOFI-AVENTIS-2012SA023891

PATIENT
  Age: 58 Year
  Sex: Male

DRUGS (5)
  1. PLAVIX [Suspect]
     Active Substance: CLOPIDOGREL BISULFATE
     Indication: ARTERIOSCLEROSIS
     Route: 048
     Dates: start: 200701
  2. PLAVIX [Suspect]
     Active Substance: CLOPIDOGREL BISULFATE
     Indication: STENT PLACEMENT
     Route: 048
     Dates: start: 20090421, end: 20090429
  3. PLAVIX [Suspect]
     Active Substance: CLOPIDOGREL BISULFATE
     Indication: ARTERIOSCLEROSIS
     Route: 048
     Dates: start: 20090421, end: 20090429
  4. ASPIRIN. [Suspect]
     Active Substance: ASPIRIN
     Route: 065
  5. PLAVIX [Suspect]
     Active Substance: CLOPIDOGREL BISULFATE
     Indication: STENT PLACEMENT
     Route: 048
     Dates: start: 200701

REACTIONS (5)
  - Cerebrovascular accident [Unknown]
  - Death [Fatal]
  - Cerebral haemorrhage [Unknown]
  - Paralysis [Unknown]
  - Brain injury [Unknown]

NARRATIVE: CASE EVENT DATE: 20090429
